FAERS Safety Report 8524695-6 (Version None)
Quarter: 2012Q3

REPORT INFORMATION
  Report Type: 
  Country: None (occurrence: None)
  Receive Date: 20120720
  Receipt Date: 20120710
  Transmission Date: 20120928
  Serious: Yes (Life-Threatening, Other)
  Sender: FDA-Public Use
  Company Number: FR-ROCHE-1078848

PATIENT
  Age: 81 Year
  Sex: Male
  Weight: 65 kg

DRUGS (8)
  1. ZELBORAF [Suspect]
     Dates: start: 20111007, end: 20120621
  2. IMOVANE [Concomitant]
  3. REPAGLINIDE [Concomitant]
     Indication: DIABETES MELLITUS
  4. ZELBORAF [Suspect]
     Indication: METASTATIC MALIGNANT MELANOMA
     Dosage: ON UNSPECIFIED DATE, STARTED WITH VEMURAFENIB
     Route: 048
  5. BISOPROLOL FUMARATE [Concomitant]
  6. PREDNISONE TAB [Concomitant]
     Dates: start: 20120510
  7. NEXIUM [Concomitant]
  8. INNOHEP [Concomitant]

REACTIONS (2)
  - LUNG NEOPLASM MALIGNANT [None]
  - SQUAMOUS CELL CARCINOMA OF SKIN [None]
